FAERS Safety Report 9747328 (Version 2)
Quarter: 2013Q4

REPORT INFORMATION
  Report Type: Spontaneous
  Country: IT (occurrence: IT)
  Receive Date: 20131212
  Receipt Date: 20131216
  Transmission Date: 20140711
  Serious: Yes (Other)
  Sender: FDA-Public Use
  Company Number: IT-RANBAXY-2013RR-75883

PATIENT
  Age: 81 Year
  Sex: Female

DRUGS (7)
  1. LERCANIDIPINE [Suspect]
     Indication: HYPERTENSION
     Dosage: 20 MG/DAY
     Route: 048
     Dates: start: 20131111, end: 20131112
  2. DOXAZOSIN [Suspect]
     Indication: HYPERTENSION
     Dosage: 2 MG/DAY
     Route: 048
     Dates: start: 20131111, end: 20131112
  3. VELAMOX [Suspect]
     Indication: ERYSIPELAS
     Dosage: 3 G/DAY
     Route: 048
     Dates: start: 20131111, end: 20131112
  4. LASITONE [Suspect]
     Indication: HYPERTENSION
     Dosage: 1 DOSAGE UNIT, DAILY
     Route: 048
     Dates: start: 20131111, end: 20131112
  5. CARDIOASPIRIN [Concomitant]
     Indication: HYPERTENSION
     Dosage: UNK
     Route: 065
     Dates: start: 20120101, end: 20131112
  6. OLMESARTAN [Concomitant]
     Indication: HYPERTENSION
     Dosage: UNK
     Route: 065
     Dates: start: 20120101, end: 20131112
  7. ATENOLOL [Concomitant]
     Indication: HYPERTENSION
     Dosage: UNK
     Route: 065
     Dates: start: 20120101, end: 20131112

REACTIONS (3)
  - Diarrhoea [Recovered/Resolved]
  - Hypotension [Recovered/Resolved]
  - Overdose [Recovered/Resolved]
